FAERS Safety Report 21842457 (Version 1)
Quarter: 2023Q1

REPORT INFORMATION
  Report Type: Spontaneous
  Country: US (occurrence: None)
  Receive Date: 20230109
  Receipt Date: 20230109
  Transmission Date: 20230417
  Serious: No
  Sender: FDA-Public Use
  Company Number: None

PATIENT
  Age: 65 Year
  Sex: Female

DRUGS (1)
  1. AVSOLA [Suspect]
     Active Substance: INFLIXIMAB-AXXQ
     Indication: Crohn^s disease
     Dosage: OTHER FREQUENCY : EVERY 8 WEEKS;?
     Route: 042
     Dates: start: 20220422, end: 20221201

REACTIONS (2)
  - Flushing [None]
  - Swelling face [None]

NARRATIVE: CASE EVENT DATE: 20221202
